FAERS Safety Report 23993594 (Version 5)
Quarter: 2024Q4

REPORT INFORMATION
  Report Type: Spontaneous
  Country: DE (occurrence: DE)
  Receive Date: 20240620
  Receipt Date: 20241001
  Transmission Date: 20250115
  Serious: Yes (Hospitalization, Other)
  Sender: ASTELLAS
  Company Number: DE-ASTELLAS-2024US017531

PATIENT
  Age: 70 Year
  Sex: Male

DRUGS (12)
  1. PADCEV [Suspect]
     Active Substance: ENFORTUMAB VEDOTIN-EJFV
     Indication: Transitional cell carcinoma metastatic
     Dosage: DOSE AND FREQUENCY OF ADMINISTRATION: 9 X 111.25 MG
     Route: 065
     Dates: start: 20240307, end: 20240531
  2. TAZOBACTAM [Suspect]
     Active Substance: TAZOBACTAM
     Indication: Sepsis
     Dosage: 1-1-1
     Route: 065
     Dates: start: 20240602, end: 20240605
  3. TAZOBACTAM [Suspect]
     Active Substance: TAZOBACTAM
     Indication: Proteus infection
     Dosage: 1-1-1
     Route: 065
     Dates: start: 20240611, end: 20240620
  4. TAZOBACTAM [Suspect]
     Active Substance: TAZOBACTAM
     Indication: Clostridial infection
  5. PEMBROLIZUMAB [Suspect]
     Active Substance: PEMBROLIZUMAB
     Indication: Transitional cell carcinoma metastatic
     Route: 065
     Dates: start: 20240307, end: 20240531
  6. ALLOPURINOL [Concomitant]
     Active Substance: ALLOPURINOL
     Indication: Product used for unknown indication
     Dosage: 100 MG, ONCE DAILY (1-0-0)
     Route: 065
  7. ATORVASTATIN [Concomitant]
     Active Substance: ATORVASTATIN
     Indication: Product used for unknown indication
     Dosage: 20 MG, ONCE DAILY (0-0-1)
     Route: 065
  8. CLOPIDOGREL [Concomitant]
     Active Substance: CLOPIDOGREL BISULFATE
     Indication: Product used for unknown indication
     Dosage: 75 MG, ONCE DAILY (1-0-0)
     Route: 065
  9. CHOLECALCIFEROL [Concomitant]
     Active Substance: CHOLECALCIFEROL
     Indication: Product used for unknown indication
     Dosage: 20000 IU, ONCE WEEKLY (ON TUESDAYS)
     Route: 065
  10. FOLIC ACID [Concomitant]
     Active Substance: FOLIC ACID
     Indication: Product used for unknown indication
     Dosage: 5 MG, UNKNOWN FREQ. (1-0-0)
     Route: 065
  11. METOPROLOL [Concomitant]
     Active Substance: METOPROLOL
     Indication: Product used for unknown indication
     Dosage: 100 MG, TWICE DAILY (1-0-1)
     Route: 065
  12. RIVAROXABAN [Concomitant]
     Active Substance: RIVAROXABAN
     Indication: Product used for unknown indication
     Dosage: 15 MG, ONCE DAILY (1-0-0)
     Route: 065

REACTIONS (9)
  - Pancytopenia [Recovered/Resolved]
  - Sepsis [Recovered/Resolved]
  - General physical health deterioration [Recovering/Resolving]
  - Ventricular tachycardia [Recovered/Resolved]
  - Acute myocardial infarction [Recovered/Resolved]
  - Clostridial infection [Recovered/Resolved]
  - Proteus infection [Recovered/Resolved]
  - Product use issue [Recovering/Resolving]
  - Off label use [Recovering/Resolving]

NARRATIVE: CASE EVENT DATE: 20240307
